FAERS Safety Report 5592461-X (Version None)
Quarter: 2008Q1

REPORT INFORMATION
  Report Type: 
  Country: None (occurrence: None)
  Receive Date: 20080111
  Receipt Date: 20080107
  Transmission Date: 20080703
  Serious: Yes (Hospitalization, Other)
  Sender: FDA-Public Use
  Company Number: 2007SP024168

PATIENT
  Age: 55 Year
  Sex: Male
  Weight: 147.8726 kg

DRUGS (4)
  1. REBETOL [Suspect]
     Indication: HEPATITIS C
     Dosage: PO, PO
     Route: 048
     Dates: start: 19981102, end: 20000601
  2. REBETOL [Suspect]
     Indication: HEPATITIS C
     Dosage: PO, PO
     Route: 048
     Dates: end: 20010701
  3. INTRON A [Suspect]
     Indication: HEPATITIS C
     Dosage: SC, SC
     Route: 058
     Dates: start: 19981102, end: 20000601
  4. INTRON A [Suspect]
     Indication: HEPATITIS C
     Dosage: SC, SC
     Route: 058
     Dates: end: 20010701

REACTIONS (4)
  - FALL [None]
  - JOINT INJURY [None]
  - KNEE ARTHROPLASTY [None]
  - KNEE MENISCECTOMY [None]
